FAERS Safety Report 5952761-8 (Version None)
Quarter: 2008Q4

REPORT INFORMATION
  Report Type: 
  Country: None (occurrence: None)
  Receive Date: 20081114
  Receipt Date: 20081104
  Transmission Date: 20090506
  Serious: No
  Sender: FDA-Public Use
  Company Number: US-B.I. PHARMACEUTICALS,INC./RIDGEFIELD-2008-BP-16145BP

PATIENT
  Sex: Female
  Weight: 76 kg

DRUGS (18)
  1. SPIRIVA [Suspect]
     Indication: ASTHMA
     Dosage: 18MCG
     Dates: start: 20071001
  2. SPIRIVA [Suspect]
     Indication: CHRONIC OBSTRUCTIVE PULMONARY DISEASE
  3. AZMACORT [Concomitant]
  4. AMLODIPINE [Concomitant]
     Dosage: 5MG
  5. SINGULAIR [Concomitant]
     Dosage: 10MG
  6. LISINOPRIL [Concomitant]
     Dosage: 40MG
  7. FEXOFENADINE [Concomitant]
     Dosage: 180MG
  8. PREVACID [Concomitant]
     Dosage: 30MG
  9. PREMARIN [Concomitant]
     Dosage: .3MG
  10. LEVOTHYROXINE SODIUM [Concomitant]
     Dosage: 50MCG
  11. LEXAPRO [Concomitant]
     Dosage: 10MG
  12. TRIAMTERENE AND HYDROCHLOROTHIAZIDE [Concomitant]
  13. ZYFLO [Concomitant]
     Dosage: 1800MG
  14. VYTORIN [Concomitant]
  15. VITAMIN D [Concomitant]
  16. ASCORBIC ACID [Concomitant]
     Dosage: 500MG
  17. CALCIUM CITRATE [Concomitant]
  18. MAGNESIUM SULFATE [Concomitant]

REACTIONS (2)
  - RESPIRATORY TRACT IRRITATION [None]
  - SENSATION OF FOREIGN BODY [None]
